FAERS Safety Report 14392191 (Version 1)
Quarter: 2018Q1

REPORT INFORMATION
  Report Type: Spontaneous
  Country: FR (occurrence: FR)
  Receive Date: 20180116
  Receipt Date: 20180116
  Transmission Date: 20180509
  Serious: Yes (Other)
  Sender: FDA-Public Use
  Company Number: FR-PFIZER INC-2018018426

PATIENT
  Age: 87 Year
  Sex: Female

DRUGS (3)
  1. DANATROL [Concomitant]
     Active Substance: DANAZOL
     Dosage: 200 MG, UNK
  2. CORDARONE [Suspect]
     Active Substance: AMIODARONE HYDROCHLORIDE
     Dosage: 100 MG, DAILY
     Route: 048
     Dates: start: 20150315
  3. PANTOPRAZOLE [Concomitant]
     Active Substance: PANTOPRAZOLE
     Dosage: UNK

REACTIONS (1)
  - Autoimmune hypothyroidism [Unknown]

NARRATIVE: CASE EVENT DATE: 201708
